FAERS Safety Report 7203527-2 (Version None)
Quarter: 2010Q4

REPORT INFORMATION
  Report Type: 
  Country: None (occurrence: None)
  Receive Date: 20101220
  Receipt Date: 20101210
  Transmission Date: 20110411
  Serious: Yes (Life-Threatening, Hospitalization, Disabling, Other)
  Sender: FDA-Public Use
  Company Number: 006657

PATIENT
  Age: 30 Year
  Sex: Male
  Weight: 59 kg

DRUGS (12)
  1. KEPPRA [Suspect]
     Indication: COMPLEX PARTIAL SEIZURES
     Dosage: (1500 MG ORAL) (4000 MG ORAL) (3000 MG ORAL) (2000 MG ORAL)
     Route: 048
     Dates: start: 20100221, end: 20100101
  2. KEPPRA [Suspect]
     Indication: COMPLEX PARTIAL SEIZURES
     Dosage: (1500 MG ORAL) (4000 MG ORAL) (3000 MG ORAL) (2000 MG ORAL)
     Route: 048
     Dates: start: 20100428, end: 20100518
  3. KEPPRA [Suspect]
     Indication: COMPLEX PARTIAL SEIZURES
     Dosage: (1500 MG ORAL) (4000 MG ORAL) (3000 MG ORAL) (2000 MG ORAL)
     Route: 048
     Dates: start: 20100519, end: 20100701
  4. KEPPRA [Suspect]
     Indication: COMPLEX PARTIAL SEIZURES
     Dosage: (1500 MG ORAL) (4000 MG ORAL) (3000 MG ORAL) (2000 MG ORAL)
     Route: 048
     Dates: start: 20100701
  5. LACOSAMIDE [Concomitant]
  6. DETROL LA [Concomitant]
  7. TRILEPTAL [Concomitant]
  8. AMLODIPINE [Concomitant]
  9. NEBIVOLOL [Concomitant]
  10. DILANTIN [Concomitant]
  11. KLONOPIN [Concomitant]
  12. ATIVAN [Concomitant]

REACTIONS (15)
  - ANGER [None]
  - ANOREXIA NERVOSA [None]
  - ATAXIA [None]
  - DEPRESSION [None]
  - DRUG INEFFECTIVE [None]
  - GRAND MAL CONVULSION [None]
  - HEART RATE DECREASED [None]
  - HOSTILITY [None]
  - HYPERTENSION [None]
  - HYPOTENSION [None]
  - INCORRECT DOSE ADMINISTERED [None]
  - NYSTAGMUS [None]
  - OVERDOSE [None]
  - PRURITUS [None]
  - SOMNOLENCE [None]
